FAERS Safety Report 16761011 (Version 2)
Quarter: 2019Q3

REPORT INFORMATION
  Report Type: Spontaneous
  Country: PT (occurrence: PT)
  Receive Date: 20190830
  Receipt Date: 20190930
  Transmission Date: 20191005
  Serious: Yes (Hospitalization, Other)
  Sender: FDA-Public Use
  Company Number: PT-PFIZER INC-2019369431

PATIENT
  Age: 68 Year
  Sex: Male

DRUGS (1)
  1. XELJANZ [Suspect]
     Active Substance: TOFACITINIB CITRATE
     Indication: RHEUMATOID ARTHRITIS
     Dosage: 5 MG, 2X/DAY
     Route: 048
     Dates: start: 20190624, end: 20190708

REACTIONS (12)
  - Cerebrovascular accident [Unknown]
  - Infection [Unknown]
  - Staphylococcal sepsis [Unknown]
  - Malaise [Unknown]
  - Dyspnoea [Unknown]
  - Type 1 diabetes mellitus [Unknown]
  - Mental disorder [Unknown]
  - Pain [Unknown]
  - Renal failure [Unknown]
  - Wound infection [Unknown]
  - Systemic candida [Unknown]
  - Localised infection [Unknown]

NARRATIVE: CASE EVENT DATE: 2019
